FAERS Safety Report 13982318 (Version 1)
Quarter: 2017Q3

REPORT INFORMATION
  Report Type: Spontaneous
  Country: GB (occurrence: GB)
  Receive Date: 20170918
  Receipt Date: 20170918
  Transmission Date: 20171128
  Serious: Yes (Other)
  Sender: FDA-Public Use
  Company Number: GB-TEVA-805539ACC

PATIENT

DRUGS (1)
  1. COPAXONE [Suspect]
     Active Substance: GLATIRAMER ACETATE
     Route: 058
     Dates: start: 20170826

REACTIONS (3)
  - Contusion [Recovered/Resolved]
  - Urinary tract infection [Recovered/Resolved]
  - Injection site mass [Recovered/Resolved]
